FAERS Safety Report 8715598 (Version 2)
Quarter: 2013Q2

REPORT INFORMATION
  Report Type: Spontaneous
  Country: US (occurrence: US)
  Receive Date: 20120809
  Receipt Date: 20130430
  Transmission Date: 20140414
  Serious: No
  Sender: FDA-Public Use
  Company Number: US-ASTRAZENECA-2012SE54468

PATIENT
  Age: 21 Year
  Sex: Female

DRUGS (1)
  1. NEXIUM [Suspect]
     Route: 048

REACTIONS (4)
  - Nephrolithiasis [Unknown]
  - Gallbladder disorder [Unknown]
  - Therapeutic response unexpected [Unknown]
  - Drug dose omission [Unknown]
